FAERS Safety Report 6568773-X (Version None)
Quarter: 2010Q1

REPORT INFORMATION
  Report Type: 
  Country: None (occurrence: None)
  Receive Date: 20100203
  Receipt Date: 20100126
  Transmission Date: 20100710
  Serious: Yes (Other)
  Sender: FDA-Public Use
  Company Number: US-SANOFI-AVENTIS-2010SA005173

PATIENT
  Age: 73 Year
  Sex: Female

DRUGS (5)
  1. LANTUS [Suspect]
     Dosage: DOSE:90 UNIT(S)
     Route: 058
  2. OPTICLICK [Suspect]
  3. CHOLESTEROL- AND TRIGLYCERIDE REDUCERS [Concomitant]
  4. ANTIHYPERTENSIVES [Concomitant]
  5. PRILOSEC [Concomitant]

REACTIONS (1)
  - CHOLELITHIASIS [None]
